FAERS Safety Report 14776976 (Version 1)
Quarter: 2018Q2

REPORT INFORMATION
  Report Type: Spontaneous
  Country: US (occurrence: US)
  Receive Date: 20180419
  Receipt Date: 20180419
  Transmission Date: 20180711
  Serious: Yes (Life-Threatening, Hospitalization, Other)
  Sender: FDA-Public Use
  Company Number: US-ROCHE-2108536

PATIENT
  Age: 62 Year
  Sex: Female

DRUGS (1)
  1. ACTILYSE [Suspect]
     Active Substance: ALTEPLASE
     Indication: PULMONARY EMBOLISM
     Route: 042

REACTIONS (5)
  - Cardiac arrest [Recovering/Resolving]
  - Acute kidney injury [Recovering/Resolving]
  - Urinary tract infection [Recovering/Resolving]
  - Escherichia bacteraemia [Recovering/Resolving]
  - Pelvic haematoma [Recovering/Resolving]
